FAERS Safety Report 7142203-1 (Version None)
Quarter: 2010Q4

REPORT INFORMATION
  Report Type: 
  Country: None (occurrence: None)
  Receive Date: 20101207
  Receipt Date: 20101122
  Transmission Date: 20110411
  Serious: No
  Sender: FDA-Public Use
  Company Number: US-PFIZER INC-2010155940

PATIENT
  Age: 71 Year
  Sex: Male
  Weight: 74.83 kg

DRUGS (1)
  1. XALATAN [Suspect]
     Indication: GLAUCOMA
     Dosage: 1 DROP IN EACH EYE DAILY
     Route: 047
     Dates: start: 20100501, end: 20101115

REACTIONS (3)
  - MICTURITION URGENCY [None]
  - MYALGIA [None]
  - POLLAKIURIA [None]
